FAERS Safety Report 23489196 (Version 1)
Quarter: 2024Q1

REPORT INFORMATION
  Report Type: Spontaneous
  Country: AT (occurrence: AT)
  Receive Date: 20240206
  Receipt Date: 20240206
  Transmission Date: 20240409
  Serious: Yes (Other)
  Sender: FDA-Public Use
  Company Number: AT-EXELIXIS-CABO-23060209

PATIENT
  Age: 42 Year
  Sex: Male

DRUGS (2)
  1. CABOMETYX [Suspect]
     Active Substance: CABOZANTINIB S-MALATE
     Indication: Gastrointestinal cancer metastatic
     Dosage: 60 MG, QD
     Route: 065
     Dates: start: 202301, end: 202303
  2. CABOMETYX [Suspect]
     Active Substance: CABOZANTINIB S-MALATE
     Indication: Off label use

REACTIONS (3)
  - Hypothyroidism [Unknown]
  - Malignant neoplasm progression [Unknown]
  - Off label use [Unknown]
